FAERS Safety Report 20447343 (Version 1)
Quarter: 2022Q1

REPORT INFORMATION
  Report Type: Spontaneous
  Country: IN (occurrence: IN)
  Receive Date: 20220209
  Receipt Date: 20220209
  Transmission Date: 20220424
  Serious: No
  Sender: FDA-Public Use
  Company Number: IN-ALKEM-IN-ALKEM-2021-02201

PATIENT
  Age: 27 Year
  Sex: Female

DRUGS (4)
  1. LINEZOLID [Suspect]
     Active Substance: LINEZOLID
     Indication: Staphylococcal infection
     Dosage: 600 MILLIGRAM, BID
     Route: 048
  2. MOXIFLOXACIN [Suspect]
     Active Substance: MOXIFLOXACIN
     Indication: Scleritis
     Dosage: UNK (0.5 % EYE DROPS HOURLY)
     Route: 061
  3. VANCOMYCIN [Suspect]
     Active Substance: VANCOMYCIN
     Indication: Staphylococcal infection
     Dosage: UNK (5% EYE DROPS HOURLY)
     Route: 061
  4. LEVOFLOXACIN [Suspect]
     Active Substance: LEVOFLOXACIN
     Indication: Scleritis
     Dosage: 500 MILLIGRAM, QD
     Route: 048

REACTIONS (1)
  - Therapeutic response decreased [Unknown]
